FAERS Safety Report 5151761-8 (Version None)
Quarter: 2006Q4

REPORT INFORMATION
  Report Type: 
  Country: None (occurrence: None)
  Receive Date: 20061115
  Receipt Date: 20061025
  Transmission Date: 20070319
  Serious: Yes (Disabling)
  Sender: FDA-Public Use
  Company Number: FR-NOVOPROD-258101

PATIENT
  Age: 26 Year
  Sex: Male

DRUGS (3)
  1. LEVEMIR [Suspect]
     Indication: DIABETES MELLITUS INSULIN-DEPENDENT
     Route: 058
  2. NOVORAPID FLEXPEN [Suspect]
     Indication: DIABETES MELLITUS INSULIN-DEPENDENT
     Route: 058
  3. AVONEX                             /00596803/ [Concomitant]
     Indication: MULTIPLE SCLEROSIS
     Dosage: 30 NG WEEKLY
     Dates: start: 20050915

REACTIONS (2)
  - CONDITION AGGRAVATED [None]
  - RETINOPATHY [None]
